FAERS Safety Report 5627608-X (Version None)
Quarter: 2008Q1

REPORT INFORMATION
  Report Type: 
  Country: None (occurrence: None)
  Receive Date: 20080214
  Receipt Date: 20080214
  Transmission Date: 20080703
  Serious: No
  Sender: FDA-Public Use
  Company Number: None

PATIENT
  Age: 35 Year
  Sex: Female
  Weight: 86.1834 kg

DRUGS (1)
  1. TOPAMAX [Suspect]
     Indication: FACIAL SPASM
     Dosage: 100 MG TWICE DAILY PO
     Route: 048
     Dates: start: 20080210, end: 20080212

REACTIONS (1)
  - EYE PAIN [None]
